FAERS Safety Report 20475610 (Version 1)
Quarter: 2022Q1

REPORT INFORMATION
  Report Type: Spontaneous
  Country: US (occurrence: None)
  Receive Date: 20220215
  Receipt Date: 20220215
  Transmission Date: 20220423
  Serious: No
  Sender: FDA-Public Use
  Company Number: None

PATIENT
  Sex: Female
  Weight: 112.6 kg

DRUGS (1)
  1. TAXOL [Suspect]
     Active Substance: PACLITAXEL
     Dates: end: 20220113

REACTIONS (8)
  - Gait disturbance [None]
  - Oedema peripheral [None]
  - Chest discomfort [None]
  - Exposure to SARS-CoV-2 [None]
  - Urinary tract infection [None]
  - Sinusitis [None]
  - Pneumonia [None]
  - Atrial fibrillation [None]

NARRATIVE: CASE EVENT DATE: 20220127
